FAERS Safety Report 7179186-4 (Version None)
Quarter: 2010Q4

REPORT INFORMATION
  Report Type: 
  Country: None (occurrence: None)
  Receive Date: 20101221
  Receipt Date: 20101209
  Transmission Date: 20110411
  Serious: Yes (Hospitalization, Other)
  Sender: FDA-Public Use
  Company Number: IT-ELI_LILLY_AND_COMPANY-IT201006003088

PATIENT
  Age: 65 Year
  Sex: Female

DRUGS (7)
  1. EFFIENT [Suspect]
     Indication: ANGINA UNSTABLE
     Dosage: 10 MG, DAILY (1/D)
     Route: 048
     Dates: start: 20100501, end: 20100606
  2. ACETYLSALICYLIC ACID [Concomitant]
     Dosage: UNK, UNKNOWN
     Route: 065
  3. STATIN /00084401/ [Concomitant]
     Dosage: UNK, UNKNOWN
     Route: 065
  4. RAMIPRIL [Concomitant]
     Dosage: UNK, UNKNOWN
     Route: 065
  5. ATORVASTATIN [Concomitant]
     Dosage: UNK, UNKNOWN
     Route: 065
  6. LASIX [Concomitant]
     Dosage: UNK, UNKNOWN
     Route: 065
  7. LANSOX [Concomitant]
     Dosage: UNK, UNKNOWN
     Route: 065

REACTIONS (1)
  - HEPATITIS ACUTE [None]
